FAERS Safety Report 22148186 (Version 1)
Quarter: 2023Q1

REPORT INFORMATION
  Report Type: Spontaneous
  Country: US (occurrence: None)
  Receive Date: 20230328
  Receipt Date: 20230328
  Transmission Date: 20230418
  Serious: Yes (Hospitalization)
  Sender: FDA-Public Use
  Company Number: None

PATIENT
  Age: 74 Year
  Weight: 53.07 kg

DRUGS (16)
  1. LENALIDOMIDE [Suspect]
     Active Substance: LENALIDOMIDE
     Indication: Plasma cell myeloma
     Dosage: FREQUENCY : DAILY;?
     Route: 048
  2. CRESTOR [Concomitant]
     Active Substance: ROSUVASTATIN CALCIUM
  3. DARZALEX [Concomitant]
     Active Substance: DARATUMUMAB
  4. DARZALEX [Concomitant]
     Active Substance: DARATUMUMAB
  5. DEXAMETHSONE [Concomitant]
  6. GABAPENTIN [Concomitant]
     Active Substance: GABAPENTIN
  7. HYDROXYZINE [Concomitant]
     Active Substance: HYDROXYZINE HYDROCHLORIDE
  8. OMEPRAZOLE [Concomitant]
     Active Substance: OMEPRAZOLE
  9. OXYCODONE [Concomitant]
     Active Substance: OXYCODONE
  10. POTASSIUM [Concomitant]
     Active Substance: POTASSIUM
  11. PROMETHAZINE [Concomitant]
     Active Substance: PROMETHAZINE HYDROCHLORIDE
  12. REMERON [Concomitant]
     Active Substance: MIRTAZAPINE
  13. TRAMADOL [Concomitant]
     Active Substance: TRAMADOL
  14. VELCADE [Concomitant]
     Active Substance: BORTEZOMIB
  15. VITAMIN D3 [Concomitant]
     Active Substance: CHOLECALCIFEROL
  16. ZOFRAN [Concomitant]
     Active Substance: ONDANSETRON HYDROCHLORIDE

REACTIONS (1)
  - Hospitalisation [None]
